FAERS Safety Report 6423453-6 (Version None)
Quarter: 2009Q4

REPORT INFORMATION
  Report Type: 
  Country: None (occurrence: None)
  Receive Date: 20091102
  Receipt Date: 20091019
  Transmission Date: 20100525
  Serious: Yes (Hospitalization)
  Sender: FDA-Public Use
  Company Number: B0599420A

PATIENT
  Sex: Male

DRUGS (1)
  1. EPIVIR [Suspect]
     Indication: HIV INFECTION
     Route: 048

REACTIONS (2)
  - DRUG RESISTANCE [None]
  - HEPATITIS [None]
